FAERS Safety Report 18628748 (Version 1)
Quarter: 2020Q4

REPORT INFORMATION
  Report Type: Spontaneous
  Country: US (occurrence: US)
  Receive Date: 20201217
  Receipt Date: 20201217
  Transmission Date: 20210114
  Serious: No
  Sender: FDA-Public Use
  Company Number: None

PATIENT
  Age: 74 Year
  Sex: Male
  Weight: 77.85 kg

DRUGS (14)
  1. ALFUZOSIN [Concomitant]
     Active Substance: ALFUZOSIN
  2. VITAMIN B12 [Concomitant]
     Active Substance: CYANOCOBALAMIN
  3. ALFUZOSIN ER [Suspect]
     Active Substance: ALFUZOSIN
     Indication: PROSTATOMEGALY
     Dosage: ?          QUANTITY:1 TABLET(S);?
     Route: 048
  4. SIMVASTATIN. [Concomitant]
     Active Substance: SIMVASTATIN
  5. IRON [Concomitant]
     Active Substance: IRON
  6. MULTI VITAMINS + MINERALS FOR ADULTS 50+ [Concomitant]
  7. RAMIPRIL. [Concomitant]
     Active Substance: RAMIPRIL
  8. CYANOCOBALAMIN. [Concomitant]
     Active Substance: CYANOCOBALAMIN
  9. METFORMIN [Concomitant]
     Active Substance: METFORMIN HYDROCHLORIDE
  10. AMLODIPINE [Concomitant]
     Active Substance: AMLODIPINE BESYLATE
  11. ASPIRIN. [Concomitant]
     Active Substance: ASPIRIN
  12. HYDROCHLOROTHIAZIDE. [Concomitant]
     Active Substance: HYDROCHLOROTHIAZIDE
  13. TAMSULOSIN [Suspect]
     Active Substance: TAMSULOSIN
  14. IPRATROPIUM [Concomitant]
     Active Substance: IPRATROPIUM

REACTIONS (2)
  - Rash [None]
  - Flatulence [None]

NARRATIVE: CASE EVENT DATE: 20190102
